FAERS Safety Report 5313713-4 (Version None)
Quarter: 2007Q2

REPORT INFORMATION
  Report Type: 
  Country: None (occurrence: None)
  Receive Date: 20070425
  Receipt Date: 20070411
  Transmission Date: 20071010
  Serious: Yes (Life-Threatening, Hospitalization, Other)
  Sender: FDA-Public Use
  Company Number: 2007RR-06852

PATIENT
  Age: 54 Year
  Sex: Male
  Weight: 83 kg

DRUGS (8)
  1. AMOXICILLIN [Suspect]
     Indication: LOWER RESPIRATORY TRACT INFECTION
     Dosage: 250 MG, TID, ORAL
     Route: 048
     Dates: start: 20070305
  2. BENDROFLUMETHIAZIDE(BENDROFLUMETHIAZIDE) UNKNOWN [Suspect]
     Indication: HYPERTENSION
     Dosage: 2.5 MG, QD, ORAL
     Route: 048
     Dates: end: 20070301
  3. BEZAFIBRATE(BEZAFIBRATE) [Suspect]
     Indication: HYPERCHOLESTEROLAEMIA
     Dosage: 400 MG, QD, ORAL
     Route: 048
     Dates: end: 20070301
  4. ATENOLOL [Concomitant]
  5. DOXAZOSIN (DOXAZOSIN) [Concomitant]
  6. IRBESARTAN [Concomitant]
  7. LANSOPRAZOLE [Concomitant]
  8. PANTOPRAZOLE SODIUM [Concomitant]

REACTIONS (2)
  - LOWER RESPIRATORY TRACT INFECTION [None]
  - PANCREATITIS ACUTE [None]
